FAERS Safety Report 10757918 (Version 1)
Quarter: 2015Q1

REPORT INFORMATION
  Report Type: Spontaneous
  Country: MX (occurrence: MX)
  Receive Date: 20150203
  Receipt Date: 20150203
  Transmission Date: 20150721
  Serious: Yes (Other)
  Sender: FDA-Public Use
  Company Number: MX-SA-2015SA010052

PATIENT
  Age: 83 Year
  Sex: Female
  Weight: 71 kg

DRUGS (1)
  1. COAPROVEL [Suspect]
     Active Substance: HYDROCHLOROTHIAZIDE\IRBESARTAN
     Indication: HYPERTENSION
     Route: 048
     Dates: start: 2008

REACTIONS (2)
  - Osteoarthritis [Recovered/Resolved]
  - Type 2 diabetes mellitus [Not Recovered/Not Resolved]

NARRATIVE: CASE EVENT DATE: 2013
